FAERS Safety Report 11972254 (Version 1)
Quarter: 2016Q1

REPORT INFORMATION
  Report Type: Report from Study
  Country: CN (occurrence: CN)
  Receive Date: 20160128
  Receipt Date: 20160128
  Transmission Date: 20160526
  Serious: Yes (Death, Other)
  Sender: FDA-Public Use
  Company Number: CN-MYLANLABS-2016M1003091

PATIENT

DRUGS (1)
  1. WARFARIN [Suspect]
     Active Substance: WARFARIN
     Indication: ANTICOAGULANT THERAPY
     Dosage: 3.75 MG/DAY
     Route: 048

REACTIONS (4)
  - Thrombosis [Fatal]
  - Mitral valve disease [Fatal]
  - Cardiac arrest [Fatal]
  - Maternal exposure during pregnancy [Unknown]
